FAERS Safety Report 24830231 (Version 1)
Quarter: 2025Q1

REPORT INFORMATION
  Report Type: Report from Study
  Country: NL (occurrence: NL)
  Receive Date: 20250110
  Receipt Date: 20250110
  Transmission Date: 20250409
  Serious: Yes (Hospitalization, Other)
  Sender: ACCORD
  Company Number: NL-EMA-20170317-dkevhprod-172032874

PATIENT
  Age: 54 Year
  Sex: Female

DRUGS (6)
  1. CAPECITABINE [Suspect]
     Active Substance: CAPECITABINE
     Indication: Intraductal proliferative breast lesion
  2. DOCETAXEL [Suspect]
     Active Substance: DOCETAXEL
     Indication: Intraductal proliferative breast lesion
  3. CAPECITABINE [Suspect]
     Active Substance: CAPECITABINE
     Indication: Intraductal proliferative breast lesion
     Dosage: 1650 MG/M2 DAILY; 825 MG/M2 TWICE DAILY ON DAYS 1-14 OF EACH CYCLE, EVERY 3 WEEKS
  4. CAPECITABINE [Suspect]
     Active Substance: CAPECITABINE
     Indication: Intraductal proliferative breast lesion
  5. DOCETAXEL [Suspect]
     Active Substance: DOCETAXEL
     Indication: Intraductal proliferative breast lesion
     Dosage: 75 MG/M2 DAILY; ON DAY 1 OF EACH CYCLE, EVERY 3 WEEKS
  6. CAPECITABINE [Suspect]
     Active Substance: CAPECITABINE
     Indication: Product used for unknown indication

REACTIONS (7)
  - Diarrhoea [Unknown]
  - Febrile neutropenia [Unknown]
  - Toxicity to various agents [Unknown]
  - Palmar-plantar erythrodysaesthesia syndrome [Recovering/Resolving]
  - Leukopenia [Unknown]
  - Mastitis [Unknown]
  - Neutropenia [Recovered/Resolved]
